FAERS Safety Report 16761039 (Version 1)
Quarter: 2019Q3

REPORT INFORMATION
  Report Type: Spontaneous
  Country: US (occurrence: US)
  Receive Date: 20190830
  Receipt Date: 20190830
  Transmission Date: 20191005
  Serious: Yes (Other)
  Sender: FDA-Public Use
  Company Number: US-ASTRAZENECA-2019SF22722

PATIENT
  Age: 20953 Day

DRUGS (11)
  1. SYMBICORT [Suspect]
     Active Substance: BUDESONIDE\FORMOTEROL FUMARATE DIHYDRATE
     Route: 055
  2. METOPROLOL TARTRATE. [Suspect]
     Active Substance: METOPROLOL TARTRATE
     Route: 065
  3. NORCO [Concomitant]
     Active Substance: ACETAMINOPHEN\HYDROCODONE BITARTRATE
  4. BUMEX [Concomitant]
     Active Substance: BUMETANIDE
  5. PLAVIX [Concomitant]
     Active Substance: CLOPIDOGREL BISULFATE
  6. VASOTEC [Concomitant]
     Active Substance: ENALAPRIL MALEATE
  7. ALBUTEROL. [Concomitant]
     Active Substance: ALBUTEROL
  8. ASPIRIN. [Concomitant]
     Active Substance: ASPIRIN
  9. LOPID [Concomitant]
     Active Substance: GEMFIBROZIL
  10. VITAMIN C [Concomitant]
     Active Substance: ASCORBIC ACID
  11. FLONASE [Concomitant]
     Active Substance: FLUTICASONE PROPIONATE

REACTIONS (19)
  - Blood homocysteine increased [Unknown]
  - Essential hypertension [Unknown]
  - Spinal osteoarthritis [Unknown]
  - Wound dehiscence [Unknown]
  - Osteoarthritis [Unknown]
  - Deafness neurosensory [Unknown]
  - Osteomyelitis [Unknown]
  - Coronary artery disease [Unknown]
  - Diabetic nephropathy [Unknown]
  - Iron deficiency anaemia [Unknown]
  - Parainfluenzae virus infection [Unknown]
  - Chronic left ventricular failure [Unknown]
  - Blood uric acid increased [Unknown]
  - Dyspnoea [Unknown]
  - Chronic obstructive pulmonary disease [Unknown]
  - Respiratory disorder [Unknown]
  - Hyperlipidaemia [Unknown]
  - Sleep apnoea syndrome [Unknown]
  - Diabetes mellitus [Unknown]

NARRATIVE: CASE EVENT DATE: 20090811
